FAERS Safety Report 4595974-2 (Version None)
Quarter: 2005Q1

REPORT INFORMATION
  Report Type: 
  Country: None (occurrence: None)
  Receive Date: 20050224
  Receipt Date: 20050224
  Transmission Date: 20050727
  Serious: Yes (Other)
  Sender: FDA-Public Use
  Company Number: None

PATIENT
  Age: 13 Year
  Sex: Male
  Weight: 45.3597 kg

DRUGS (1)
  1. CONCERTA [Suspect]
     Indication: ATTENTION DEFICIT/HYPERACTIVITY DISORDER
     Dosage: 2 PO ORAL
     Route: 048
     Dates: start: 20010901, end: 20040215

REACTIONS (3)
  - CHEST PAIN [None]
  - DIZZINESS [None]
  - HEART RATE IRREGULAR [None]
